FAERS Safety Report 5705122-0 (Version None)
Quarter: 2008Q2

REPORT INFORMATION
  Report Type: 
  Country: None (occurrence: None)
  Receive Date: 20080410
  Receipt Date: 20080326
  Transmission Date: 20081010
  Serious: Yes (Death)
  Sender: FDA-Public Use
  Company Number: E3810-01748-SOL-US

PATIENT
  Age: 81 Year
  Sex: Female
  Weight: 69 kg

DRUGS (7)
  1. ACIPHEX [Suspect]
     Indication: DRUG USE FOR UNKNOWN INDICATION
     Dosage: 20 MG, ORAL
     Route: 048
  2. LASIX [Concomitant]
  3. SYNTHROID [Concomitant]
  4. PREDNISOLONE [Concomitant]
  5. FLEXERIL [Concomitant]
  6. DIGOXIN [Concomitant]
  7. CONCERTA [Concomitant]

REACTIONS (3)
  - ASTHENIA [None]
  - DEHYDRATION [None]
  - PNEUMONIA [None]
